FAERS Safety Report 4827768-4 (Version None)
Quarter: 2005Q4

REPORT INFORMATION
  Report Type: 
  Country: None (occurrence: None)
  Receive Date: 20051110
  Receipt Date: 20051102
  Transmission Date: 20060501
  Serious: Yes (Hospitalization, Other)
  Sender: FDA-Public Use
  Company Number: 163-20785-03040428

PATIENT
  Age: 71 Year
  Sex: Female
  Weight: 98 kg

DRUGS (28)
  1. THALOMID [Suspect]
     Indication: MULTIPLE MYELOMA
     Dosage: SEE IMAGE
     Route: 048
     Dates: start: 20021021, end: 20030317
  2. THALOMID [Suspect]
     Indication: MULTIPLE MYELOMA
     Dosage: SEE IMAGE
     Route: 048
     Dates: start: 20030422
  3. ARSENIC TRIOXIDE                    (ARSENIC TRIOXIDE) [Suspect]
     Indication: MULTIPLE MYELOMA
     Dosage: 0.25 MG/KG, INTRAVENOUS
     Route: 042
     Dates: start: 20050322
  4. DOXIL [Concomitant]
  5. VINCRISTINE [Concomitant]
  6. DECADRON [Concomitant]
  7. FLUDROCORTISONE ACETATE [Concomitant]
  8. GABAPENTIN [Concomitant]
  9. MORPHINE [Concomitant]
  10. ASPIRIN [Concomitant]
  11. SERTRALINE HCL [Concomitant]
  12. TAMOXIFEN CITRATE [Concomitant]
  13. POTASSIUM CHLORIDE [Concomitant]
  14. METOPROLOL SUCCINATE [Concomitant]
  15. FUROSEMIDE [Concomitant]
  16. WARFARIN SODIUM [Concomitant]
  17. COLACE (DOCUSATE SODIUM) [Concomitant]
  18. MAGNESIUM HYDROXIDE (MAGNESIUM HYDROXIDE) [Concomitant]
  19. ALDACTONE [Concomitant]
  20. FOLIC ACID [Concomitant]
  21. NEXIUM [Concomitant]
  22. THIAMINE (THIAMINE) [Concomitant]
  23. K-DUR 10 [Concomitant]
  24. LOPRESSOR [Concomitant]
  25. PAROXETINE HCL [Concomitant]
  26. AMBIEN [Concomitant]
  27. XOPENEX [Concomitant]
  28. ADVAIR DISKUS (SERETIDE MITE) [Concomitant]

REACTIONS (20)
  - ANAEMIA [None]
  - ASTHENIA [None]
  - BLOOD PRESSURE DECREASED [None]
  - BREAST CANCER [None]
  - CARDIOMEGALY [None]
  - COMPRESSION FRACTURE [None]
  - FALL [None]
  - INTERNATIONAL NORMALISED RATIO DECREASED [None]
  - INTERSTITIAL LUNG DISEASE [None]
  - LUMBAR SPINAL STENOSIS [None]
  - MEDIASTINAL DISORDER [None]
  - MEMORY IMPAIRMENT [None]
  - NEUROPATHY PERIPHERAL [None]
  - OEDEMA PERIPHERAL [None]
  - OSTEOARTHRITIS [None]
  - PNEUMONIA [None]
  - PULMONARY OEDEMA [None]
  - URINARY INCONTINENCE [None]
  - URINARY TRACT INFECTION [None]
  - VENOUS STASIS [None]
